FAERS Safety Report 5773209-2 (Version None)
Quarter: 2008Q2

REPORT INFORMATION
  Report Type: 
  Country: None (occurrence: None)
  Receive Date: 20080613
  Receipt Date: 20080613
  Transmission Date: 20081010
  Serious: Yes (Hospitalization, Congenital Anomaly)
  Sender: FDA-Public Use
  Company Number: None

PATIENT
  Age: 1 Day
  Sex: Male
  Weight: 3.34 kg

DRUGS (1)
  1. LAMICTAL [Suspect]
     Indication: BIPOLAR DISORDER
     Dosage: 300 MG DAILY PO
     Route: 048

REACTIONS (6)
  - ABDOMINAL DISTENSION [None]
  - ANAL ATRESIA [None]
  - INTESTINAL OBSTRUCTION [None]
  - MATERNAL DRUGS AFFECTING FOETUS [None]
  - MECONIUM ABNORMAL [None]
  - VOMITING [None]
